FAERS Safety Report 21666661 (Version 1)
Quarter: 2022Q4

REPORT INFORMATION
  Report Type: Spontaneous
  Country: FR (occurrence: FR)
  Receive Date: 20221201
  Receipt Date: 20221201
  Transmission Date: 20230113
  Serious: Yes (Hospitalization)
  Sender: FDA-Public Use
  Company Number: None

PATIENT
  Age: 57 Year
  Sex: Male
  Weight: 122 kg

DRUGS (3)
  1. EZETIMIBE [Suspect]
     Active Substance: EZETIMIBE
     Indication: Dyslipidaemia
     Dosage: UNIT DOSE : 10 MG   , FREQUENCY TIME : 1 DAY  , DURATION : 17 DAYS
     Dates: start: 20220926, end: 20221013
  2. ATORVASTATIN [Suspect]
     Active Substance: ATORVASTATIN
     Indication: Dyslipidaemia
     Dosage: UNIT DOSE : 10 MG    , FREQUENCY TIME : 1 DAY  , DURATION : 17 DAYS
     Dates: start: 20220926, end: 20221013
  3. TRULICITY [Suspect]
     Active Substance: DULAGLUTIDE
     Indication: Type 2 diabetes mellitus
     Dosage: DOSAGE INCREASE ON 09/26/2022, UNIT DOSE : 3 MG   , FREQUENCY TIME : 1 WEEKS  , DURATION : 4 YEARS
     Dates: start: 201801, end: 20221013

REACTIONS (1)
  - Pancreatitis acute [Recovered/Resolved]

NARRATIVE: CASE EVENT DATE: 20221006
